FAERS Safety Report 9015021 (Version 1)
Quarter: 2013Q1

REPORT INFORMATION
  Report Type: Spontaneous
  Country: US (occurrence: US)
  Receive Date: 20130116
  Receipt Date: 20130116
  Transmission Date: 20140127
  Serious: Yes (Life-Threatening, Hospitalization)
  Sender: FDA-Public Use
  Company Number: US-AMGEN-USASP2013001423

PATIENT
  Age: 35 Year
  Sex: Male

DRUGS (8)
  1. NPLATE [Suspect]
     Indication: IDIOPATHIC THROMBOCYTOPENIC PURPURA
     Dosage: 1 MUG/KG, UNK
     Dates: start: 20120103
  2. ZOFRAN                             /00955301/ [Concomitant]
  3. VANCOMYCIN [Concomitant]
  4. DORIPENEM [Concomitant]
  5. PROTONIX [Concomitant]
  6. FLUCONAZOLE [Concomitant]
  7. LEVOTHYROXINE [Concomitant]
  8. DILAUDID [Concomitant]

REACTIONS (1)
  - Platelet disorder [Unknown]
